FAERS Safety Report 25622883 (Version 1)
Quarter: 2025Q3

REPORT INFORMATION
  Report Type: Spontaneous
  Country: EU (occurrence: EU)
  Receive Date: 20250730
  Receipt Date: 20250730
  Transmission Date: 20251020
  Serious: Yes (Other)
  Sender: ALEXION PHARMACEUTICALS
  Company Number: EU-AstraZeneca-CH-00916722AM

PATIENT
  Age: 51 Year
  Sex: Female

DRUGS (4)
  1. TEZSPIRE [Suspect]
     Active Substance: TEZEPELUMAB-EKKO
     Indication: Asthma
     Route: 065
     Dates: start: 202408
  2. MORPHINE [Concomitant]
     Active Substance: MORPHINE
     Route: 065
  3. SERETIDE ^ALLEN + HANBURYS LTD^ [Concomitant]
     Route: 065
  4. ATARAX [Concomitant]
     Active Substance: HYDROXYZINE HYDROCHLORIDE
     Indication: Hypersensitivity
     Route: 065

REACTIONS (4)
  - Aphonia [Unknown]
  - Dyspnoea [Unknown]
  - Off label use [Unknown]
  - Therapy cessation [Unknown]
